FAERS Safety Report 6874915-9 (Version None)
Quarter: 2010Q3

REPORT INFORMATION
  Report Type: 
  Country: None (occurrence: None)
  Receive Date: 20100723
  Receipt Date: 20100710
  Transmission Date: 20110219
  Serious: Yes (Death, Hospitalization)
  Sender: FDA-Public Use
  Company Number: IPC201007-000193

PATIENT
  Age: 55 Year
  Sex: Male

DRUGS (3)
  1. METFORMIN HYDROCHLORIDE (METFORMIN HYDROCHLORIDE) (TABLETS) (METFORMIN [Suspect]
     Indication: TYPE 2 DIABETES MELLITUS
     Dosage: INGESTED 50-60 TABLETS OF 850MG, ORAL
     Route: 048
  2. ROSIGLITAZONE [Suspect]
     Indication: TYPE 2 DIABETES MELLITUS
  3. GLIPIZIDE [Suspect]
     Indication: TYPE 2 DIABETES MELLITUS

REACTIONS (14)
  - ABDOMINAL PAIN [None]
  - BLOOD CREATININE INCREASED [None]
  - BLOOD GLUCOSE INCREASED [None]
  - CARDIAC ARREST [None]
  - HAEMODIALYSIS [None]
  - HEART RATE INCREASED [None]
  - HYPOTENSION [None]
  - INTENTIONAL OVERDOSE [None]
  - LACTIC ACIDOSIS [None]
  - LETHARGY [None]
  - NAUSEA [None]
  - RESPIRATORY ARREST [None]
  - SOMNOLENCE [None]
  - SUICIDE ATTEMPT [None]
